FAERS Safety Report 19230537 (Version 5)
Quarter: 2021Q3

REPORT INFORMATION
  Report Type: Report from Study
  Country: US (occurrence: US)
  Receive Date: 20210507
  Receipt Date: 20210922
  Transmission Date: 20211014
  Serious: No
  Sender: FDA-Public Use
  Company Number: NVSC2021US097211

PATIENT
  Sex: Female

DRUGS (4)
  1. PROMACTA [Suspect]
     Active Substance: ELTROMBOPAG OLAMINE
     Dosage: 50 MG
     Route: 065
  2. PROMACTA [Suspect]
     Active Substance: ELTROMBOPAG OLAMINE
     Route: 048
  3. PROMACTA [Suspect]
     Active Substance: ELTROMBOPAG OLAMINE
     Route: 048
  4. PROMACTA [Suspect]
     Active Substance: ELTROMBOPAG OLAMINE
     Indication: PRODUCT USED FOR UNKNOWN INDICATION
     Dosage: 75 MG, QD
     Route: 048

REACTIONS (14)
  - Inappropriate schedule of product administration [Unknown]
  - Vomiting [Unknown]
  - Product availability issue [Unknown]
  - Fibromyalgia [Unknown]
  - Abdominal discomfort [Unknown]
  - Hypersensitivity [Unknown]
  - Platelet count decreased [Unknown]
  - Oropharyngeal pain [Unknown]
  - Myalgia [Unknown]
  - Headache [Unknown]
  - Diarrhoea [Unknown]
  - Pain [Unknown]
  - Arthritis [Unknown]
  - Illness [Unknown]
